FAERS Safety Report 6088839-0 (Version None)
Quarter: 2009Q1

REPORT INFORMATION
  Report Type: 
  Country: None (occurrence: None)
  Receive Date: 20090219
  Receipt Date: 20090209
  Transmission Date: 20090719
  Serious: Yes (Life-Threatening, Hospitalization, Other)
  Sender: FDA-Public Use
  Company Number: 100#03#2009-00143

PATIENT
  Sex: Male

DRUGS (4)
  1. METFORMIN HCL [Suspect]
     Indication: TYPE 2 DIABETES MELLITUS
     Dosage: 850 MG ONCE DAILY ORAL
     Route: 048
     Dates: start: 20080929, end: 20081009
  2. CAPTOPRIL AND HYDROCHLOROTHIAZIDE [Suspect]
     Indication: HYPERTENSION
     Dosage: 1 DF (25/12.5 MG) ONCE DAILY ORAL
     Route: 048
     Dates: start: 20080919, end: 20081007
  3. IBUDOLOR (400 MILLIGRAM) (IBUPROFEN) [Concomitant]
  4. TRAMAL (50 MILLIGRAM, CAPSULES) (TRAMADOL) [Concomitant]

REACTIONS (7)
  - BLOOD CREATINE INCREASED [None]
  - HAEMOGLOBIN INCREASED [None]
  - HAEMOLYTIC ANAEMIA [None]
  - PLATELET COUNT INCREASED [None]
  - RED BLOOD CELL COUNT INCREASED [None]
  - SPONDYLITIS [None]
  - THROMBOTIC THROMBOCYTOPENIC PURPURA [None]
